FAERS Safety Report 13419139 (Version 2)
Quarter: 2018Q1

REPORT INFORMATION
  Report Type: Spontaneous
  Country: US (occurrence: US)
  Receive Date: 20170407
  Receipt Date: 20180118
  Transmission Date: 20180508
  Serious: No
  Sender: FDA-Public Use
  Company Number: US-JNJFOC-20170320615

PATIENT
  Sex: Male

DRUGS (17)
  1. RISPERDAL [Suspect]
     Active Substance: RISPERIDONE
     Indication: AUTISM SPECTRUM DISORDER
     Dosage: IN VARYING DOSE OF 0.5 MG TO 1 MG
     Route: 048
     Dates: start: 20051005, end: 20081026
  2. RISPERDAL [Suspect]
     Active Substance: RISPERIDONE
     Indication: AGORAPHOBIA
     Dosage: IN VARYING DOSE OF 0.5 MG TO 1 MG
     Route: 048
     Dates: start: 20051005, end: 20081026
  3. RISPERDAL [Suspect]
     Active Substance: RISPERIDONE
     Indication: PANIC ATTACK
     Dosage: IN VARYING DOSE OF 0.5 MG TO 1 MG
     Route: 048
     Dates: start: 20051005, end: 20081026
  4. RISPERDAL [Suspect]
     Active Substance: RISPERIDONE
     Indication: PANIC ATTACK
     Route: 048
     Dates: end: 20161202
  5. RISPERIDONE. [Suspect]
     Active Substance: RISPERIDONE
     Indication: INTERMITTENT EXPLOSIVE DISORDER
     Route: 048
     Dates: start: 20051005
  6. RISPERIDONE. [Suspect]
     Active Substance: RISPERIDONE
     Indication: INTERMITTENT EXPLOSIVE DISORDER
     Dosage: IN VARYING DOSE OF 0.5 MG TO 1 MG
     Route: 048
     Dates: start: 20081123, end: 20161202
  7. RISPERDAL [Suspect]
     Active Substance: RISPERIDONE
     Indication: INTERMITTENT EXPLOSIVE DISORDER
     Route: 048
     Dates: end: 20161202
  8. RISPERDAL [Suspect]
     Active Substance: RISPERIDONE
     Indication: INTERMITTENT EXPLOSIVE DISORDER
     Dosage: IN VARYING DOSE OF 0.5 MG TO 1 MG
     Route: 048
     Dates: start: 20051005, end: 20081026
  9. RISPERIDONE. [Suspect]
     Active Substance: RISPERIDONE
     Indication: AUTISM SPECTRUM DISORDER
     Dosage: IN VARYING DOSE OF 0.5 MG TO 1 MG
     Route: 048
     Dates: start: 20081123, end: 20161202
  10. RISPERIDONE. [Suspect]
     Active Substance: RISPERIDONE
     Indication: PANIC ATTACK
     Dosage: IN VARYING DOSE OF 0.5 MG TO 1 MG
     Route: 048
     Dates: start: 20081123, end: 20161202
  11. RISPERIDONE. [Suspect]
     Active Substance: RISPERIDONE
     Indication: PRODUCT USED FOR UNKNOWN INDICATION
     Route: 048
  12. RISPERDAL [Suspect]
     Active Substance: RISPERIDONE
     Indication: AGORAPHOBIA
     Route: 048
     Dates: end: 20161202
  13. RISPERIDONE. [Suspect]
     Active Substance: RISPERIDONE
     Indication: PANIC ATTACK
     Route: 048
     Dates: start: 20051005
  14. RISPERIDONE. [Suspect]
     Active Substance: RISPERIDONE
     Indication: AGORAPHOBIA
     Route: 048
     Dates: start: 20051005
  15. RISPERDAL [Suspect]
     Active Substance: RISPERIDONE
     Indication: AUTISM SPECTRUM DISORDER
     Route: 048
     Dates: end: 20161202
  16. RISPERIDONE. [Suspect]
     Active Substance: RISPERIDONE
     Indication: AUTISM SPECTRUM DISORDER
     Route: 048
     Dates: start: 20051005
  17. RISPERIDONE. [Suspect]
     Active Substance: RISPERIDONE
     Indication: AGORAPHOBIA
     Dosage: IN VARYING DOSE OF 0.5 MG TO 1 MG
     Route: 048
     Dates: start: 20081123, end: 20161202

REACTIONS (2)
  - Gynaecomastia [Unknown]
  - Emotional disorder [Unknown]
